FAERS Safety Report 7313340-3 (Version None)
Quarter: 2011Q1

REPORT INFORMATION
  Report Type: 
  Country: None (occurrence: None)
  Receive Date: 20110215
  Receipt Date: 20110215
  Transmission Date: 20110831
  Serious: Yes (Other)
  Sender: FDA-Public Use
  Company Number: None

PATIENT
  Sex: Female
  Weight: 78.9259 kg

DRUGS (1)
  1. NAPROXEN SODIUM [Suspect]
     Indication: PROCEDURAL PAIN
     Dosage: 1 @ 10PM + 1 AT 2 AM ONCE PO
     Route: 048
     Dates: start: 20110213, end: 20110214

REACTIONS (10)
  - NAUSEA [None]
  - HYPOAESTHESIA ORAL [None]
  - HEART RATE INCREASED [None]
  - ERYTHEMA [None]
  - FEELING ABNORMAL [None]
  - HYPERHIDROSIS [None]
  - BURNING SENSATION [None]
  - GASTROINTESTINAL PAIN [None]
  - HYPOAESTHESIA FACIAL [None]
  - HAEMATOCHEZIA [None]
